FAERS Safety Report 6110163-8 (Version None)
Quarter: 2009Q1

REPORT INFORMATION
  Report Type: 
  Country: None (occurrence: None)
  Receive Date: 20090306
  Receipt Date: 20090306
  Transmission Date: 20090719
  Serious: No
  Sender: FDA-Public Use
  Company Number: None

PATIENT
  Age: 80 Year
  Sex: Female
  Weight: 97 kg

DRUGS (1)
  1. PRIMAXIN [Suspect]
     Indication: PNEUMONIA
     Dosage: 500MG Q8H IV
     Route: 042
     Dates: start: 20090226, end: 20090228

REACTIONS (1)
  - LIVER FUNCTION TEST ABNORMAL [None]
